FAERS Safety Report 18418037 (Version 1)
Quarter: 2020Q4

REPORT INFORMATION
  Report Type: Spontaneous
  Country: US (occurrence: US)
  Receive Date: 20201023
  Receipt Date: 20201023
  Transmission Date: 20210114
  Serious: No
  Sender: FDA-Public Use
  Company Number: US-JNJFOC-20201022535

PATIENT
  Age: 41 Year
  Sex: Male
  Weight: 72.64 kg

DRUGS (1)
  1. MENS ROGAINE EXTRA STRENGTH [Suspect]
     Active Substance: MINOXIDIL
     Indication: ALOPECIA
     Dosage: HALF A CUP ONCE?PRODUCT WAS LAST ADMINISTERED ON 06/OCT/2020
     Route: 061
     Dates: start: 20201006

REACTIONS (4)
  - Underdose [Unknown]
  - Application site rash [Not Recovered/Not Resolved]
  - Inappropriate schedule of product administration [Unknown]
  - Application site erythema [Not Recovered/Not Resolved]

NARRATIVE: CASE EVENT DATE: 20201006
